FAERS Safety Report 20693875 (Version 3)
Quarter: 2022Q3

REPORT INFORMATION
  Report Type: Spontaneous
  Country: US (occurrence: US)
  Receive Date: 20220411
  Receipt Date: 20220927
  Transmission Date: 20221027
  Serious: Yes (Other)
  Sender: FDA-Public Use
  Company Number: US-JNJFOC-20220404994

PATIENT
  Age: 67 Year
  Sex: Female
  Weight: 80.7 kg

DRUGS (1)
  1. TYLENOL [Suspect]
     Active Substance: ACETAMINOPHEN
     Indication: Pyrexia
     Dosage: TOTAL 5 DOSES
     Route: 048
     Dates: start: 20220309, end: 20220311

REACTIONS (5)
  - Blood bilirubin increased [Unknown]
  - Blood alkaline phosphatase increased [Unknown]
  - Alanine aminotransferase increased [Recovered/Resolved with Sequelae]
  - Activated partial thromboplastin time prolonged [Unknown]
  - Aspartate aminotransferase increased [Unknown]

NARRATIVE: CASE EVENT DATE: 20220315
